FAERS Safety Report 24234365 (Version 1)
Quarter: 2024Q3

REPORT INFORMATION
  Report Type: Spontaneous
  Country: GB (occurrence: GB)
  Receive Date: 20240821
  Receipt Date: 20240821
  Transmission Date: 20241017
  Serious: Yes (Other)
  Sender: INCYTE
  Company Number: GB-002147023-NVSC2024GB167048

PATIENT

DRUGS (2)
  1. RUXOLITINIB [Suspect]
     Active Substance: RUXOLITINIB
     Indication: Polycythaemia vera
     Dosage: 10 MG, BID
     Route: 065
     Dates: start: 202311
  2. HYDROXYUREA [Suspect]
     Active Substance: HYDROXYUREA
     Indication: Product used for unknown indication
     Dosage: DOSE ESCALATION FROM 1000MG DAILY
     Route: 065

REACTIONS (2)
  - Myeloproliferative neoplasm [Unknown]
  - Laboratory test abnormal [Unknown]
